FAERS Safety Report 19907887 (Version 1)
Quarter: 2021Q4

REPORT INFORMATION
  Report Type: Spontaneous
  Country: US (occurrence: US)
  Receive Date: 20211001
  Receipt Date: 20211001
  Transmission Date: 20220304
  Serious: No
  Sender: FDA-Public Use
  Company Number: US-PFIZER INC-2021602014

PATIENT
  Age: 73 Year
  Sex: Female
  Weight: 58.97 kg

DRUGS (5)
  1. NARDIL [Suspect]
     Active Substance: PHENELZINE SULFATE
     Indication: Depression
     Dosage: 90 MG, 1X/DAY (EVERY NIGHT)
     Route: 048
  2. TOPAMAX [Suspect]
     Active Substance: TOPIRAMATE
     Indication: Appetite disorder
  3. LEVOTHYROXINE [Concomitant]
     Active Substance: LEVOTHYROXINE
     Indication: Thyroid disorder
     Dosage: 25 UG, 1X/DAY
     Route: 048
  4. LIOTHYRONINE SODIUM [Concomitant]
     Active Substance: LIOTHYRONINE SODIUM
     Indication: Thyroid disorder
     Dosage: UNK
  5. DEPLIN [Concomitant]
     Active Substance: LEVOMEFOLATE CALCIUM
     Indication: Depression
     Dosage: 1 DF

REACTIONS (1)
  - Hypertension [Unknown]
